FAERS Safety Report 19283167 (Version 1)
Quarter: 2021Q2

REPORT INFORMATION
  Report Type: Spontaneous
  Country: US (occurrence: US)
  Receive Date: 20210520
  Receipt Date: 20210520
  Transmission Date: 20210717
  Serious: Yes (Other)
  Sender: FDA-Public Use
  Company Number: US-BAUSCH-BL-2021-017102

PATIENT
  Age: 41 Year
  Sex: Male

DRUGS (3)
  1. LOTEPREDNOL [Suspect]
     Active Substance: LOTEPREDNOL
     Route: 065
  2. TOBRAMYCIN. [Concomitant]
     Active Substance: TOBRAMYCIN
     Indication: CORNEAL ABRASION
     Route: 061
  3. LOTEPREDNOL [Suspect]
     Active Substance: LOTEPREDNOL
     Indication: CORNEAL ABRASION
     Route: 065

REACTIONS (4)
  - Nocardiosis [Recovered/Resolved]
  - Condition aggravated [Recovered/Resolved]
  - Keratitis bacterial [Recovered/Resolved]
  - Therapy non-responder [Unknown]
